FAERS Safety Report 7239124-2 (Version None)
Quarter: 2011Q1

REPORT INFORMATION
  Report Type: 
  Country: None (occurrence: None)
  Receive Date: 20110121
  Receipt Date: 20110119
  Transmission Date: 20110831
  Serious: Yes (Other)
  Sender: FDA-Public Use
  Company Number: GB-PFIZER INC-2011013804

PATIENT
  Age: 62 Year
  Sex: Female

DRUGS (3)
  1. LATANOPROST [Concomitant]
     Indication: GLAUCOMA
     Dosage: 5 ML, 1X/DAY
     Route: 047
     Dates: start: 20020401
  2. BRINZOLAMIDE [Concomitant]
     Indication: GLAUCOMA
     Dosage: 1 DF, 2X/DAY
     Route: 047
     Dates: start: 20091201
  3. CHAMPIX [Suspect]
     Indication: SMOKING CESSATION THERAPY
     Dosage: 1 MG, 1X/DAY
     Route: 048
     Dates: start: 20101101, end: 20101224

REACTIONS (5)
  - HYPERSOMNIA [None]
  - ARTHRALGIA [None]
  - ANXIETY [None]
  - FLAT AFFECT [None]
  - DEPRESSED MOOD [None]
